FAERS Safety Report 4641553-8 (Version None)
Quarter: 2005Q2

REPORT INFORMATION
  Report Type: 
  Country: None (occurrence: None)
  Receive Date: 20050421
  Receipt Date: 20050411
  Transmission Date: 20051028
  Serious: Yes (Hospitalization)
  Sender: FDA-Public Use
  Company Number: GBWYE575011APR05

PATIENT
  Sex: Male
  Weight: 94 kg

DRUGS (5)
  1. ENBREL [Suspect]
     Indication: RHEUMATOID ARTHRITIS
     Route: 058
     Dates: start: 20030612
  2. FOLIC ACID [Concomitant]
  3. ARTHROTEC [Concomitant]
  4. CODEINE PHOSPHATE/PARACETAMOL [Concomitant]
  5. RESPIRATORY MEDICATION NOS [Concomitant]
     Route: 055

REACTIONS (1)
  - SKIN LESION [None]
